FAERS Safety Report 6803950-1 (Version None)
Quarter: 2010Q2

REPORT INFORMATION
  Report Type: 
  Country: None (occurrence: None)
  Receive Date: 20100628
  Receipt Date: 20060710
  Transmission Date: 20101027
  Serious: No
  Sender: FDA-Public Use
  Company Number: US-PFIZER INC-2006086128

PATIENT
  Sex: Female
  Weight: 81.65 kg

DRUGS (2)
  1. SUTENT [Suspect]
     Indication: LEIOMYOSARCOMA
     Dosage: CYCLIC 4 WEEKS ON AND 2 WEEKS OFF
     Route: 065
     Dates: start: 20060501
  2. VITAMINS [Concomitant]
     Route: 065

REACTIONS (2)
  - EXCORIATION [None]
  - SKIN LESION [None]
